FAERS Safety Report 21382280 (Version 1)
Quarter: 2022Q3

REPORT INFORMATION
  Report Type: Spontaneous
  Country: US (occurrence: US)
  Receive Date: 20220927
  Receipt Date: 20220927
  Transmission Date: 20221026
  Serious: No
  Sender: FDA-Public Use
  Company Number: US-C B Fleet Co Inc-202202-US-000559

PATIENT
  Sex: Female

DRUGS (1)
  1. MONISTAT 3 COMBINATION PACK [Suspect]
     Active Substance: MICONAZOLE NITRATE
     Indication: Fungal infection
     Dosage: UNKNOWN
     Route: 067

REACTIONS (5)
  - Condition aggravated [Not Recovered/Not Resolved]
  - Vulvovaginal pruritus [Not Recovered/Not Resolved]
  - Vulvovaginal inflammation [Not Recovered/Not Resolved]
  - Vaginal discharge [Not Recovered/Not Resolved]
  - Vulvovaginal erythema [Not Recovered/Not Resolved]
